FAERS Safety Report 5156094-1 (Version None)
Quarter: 2006Q4

REPORT INFORMATION
  Report Type: 
  Country: None (occurrence: None)
  Receive Date: 20061122
  Receipt Date: 20061114
  Transmission Date: 20070319
  Serious: Yes (Other)
  Sender: FDA-Public Use
  Company Number: PHEH2006US14233

PATIENT
  Age: 75 Year
  Sex: Female

DRUGS (3)
  1. MIACALCIN [Suspect]
     Indication: OSTEOPOROSIS
     Dosage: 200 IU, BID
     Dates: start: 20040301
  2. MIACALCIN [Suspect]
     Dosage: 200 IU, QD
  3. FORTEO [Suspect]

REACTIONS (2)
  - EPISTAXIS [None]
  - RENAL FAILURE [None]
